FAERS Safety Report 23215946 (Version 1)
Quarter: 2023Q4

REPORT INFORMATION
  Report Type: Spontaneous
  Country: IT (occurrence: IT)
  Receive Date: 20231122
  Receipt Date: 20231122
  Transmission Date: 20240110
  Serious: Yes (Hospitalization)
  Sender: FDA-Public Use
  Company Number: None

PATIENT

DRUGS (1)
  1. LAMOTRIGINE [Suspect]
     Active Substance: LAMOTRIGINE
     Indication: Accidental exposure to product
     Dosage: 300 MG; 1 TABLET OF 300 MG, SINGLE DOSE
     Route: 048
     Dates: start: 20231112, end: 20231112

REACTIONS (4)
  - Confusional state [Recovering/Resolving]
  - Vertigo [Recovering/Resolving]
  - Disorientation [Recovering/Resolving]
  - Medication error [Recovering/Resolving]

NARRATIVE: CASE EVENT DATE: 20231112
